FAERS Safety Report 24745420 (Version 1)
Quarter: 2024Q4

REPORT INFORMATION
  Report Type: Spontaneous
  Country: US (occurrence: US)
  Receive Date: 20241217
  Receipt Date: 20241217
  Transmission Date: 20250115
  Serious: Yes (Other)
  Sender: NOVO NORDISK
  Company Number: US-NOVOPROD-1335126

PATIENT
  Age: 65 Year
  Sex: Female

DRUGS (4)
  1. OZEMPIC [Suspect]
     Active Substance: SEMAGLUTIDE
     Indication: Rheumatoid arthritis
     Dosage: 0.25 MG
     Route: 058
     Dates: start: 20241121
  2. OZEMPIC [Suspect]
     Active Substance: SEMAGLUTIDE
     Indication: Psoriatic arthropathy
  3. OZEMPIC [Suspect]
     Active Substance: SEMAGLUTIDE
     Indication: Systemic lupus erythematosus
  4. HUMIRA [Concomitant]
     Active Substance: ADALIMUMAB
     Indication: Product used for unknown indication
     Dosage: 40 MG EVERY 2 WEEKS
     Route: 058

REACTIONS (5)
  - Injection [Unknown]
  - Nausea [Unknown]
  - Vomiting [Unknown]
  - Decreased appetite [Unknown]
  - Off label use [Unknown]

NARRATIVE: CASE EVENT DATE: 20241204
